FAERS Safety Report 7392226-2 (Version None)
Quarter: 2011Q2

REPORT INFORMATION
  Report Type: 
  Country: None (occurrence: None)
  Receive Date: 20110404
  Receipt Date: 20110329
  Transmission Date: 20111010
  Serious: Yes (Hospitalization)
  Sender: FDA-Public Use
  Company Number: US-MERCK-0702USA01523

PATIENT
  Age: 48 Year
  Sex: Male

DRUGS (9)
  1. KLONOPIN [Concomitant]
     Route: 065
  2. SEROQUEL [Concomitant]
     Route: 065
  3. FLOMAX [Concomitant]
     Route: 065
  4. REQUIP [Suspect]
     Route: 065
  5. CELEXA [Concomitant]
     Route: 065
  6. SINEMET [Suspect]
     Indication: PARKINSON'S DISEASE
     Dosage: 25MG-100 MG TABLET
     Route: 048
     Dates: start: 20050101
  7. COMTAN [Suspect]
     Route: 065
  8. SINEMET [Suspect]
     Dosage: 25MG-100 MG TABLET
     Route: 048
     Dates: start: 20010601, end: 20050101
  9. SINEMET CR [Suspect]
     Indication: PARKINSON'S DISEASE
     Route: 048

REACTIONS (12)
  - WRONG TECHNIQUE IN DRUG USAGE PROCESS [None]
  - BALANCE DISORDER [None]
  - DRUG EFFECT DELAYED [None]
  - FEELING ABNORMAL [None]
  - PARKINSON'S DISEASE [None]
  - DRUG INEFFECTIVE [None]
  - TREMOR [None]
  - DRUG INTERACTION [None]
  - DRUG EFFECT PROLONGED [None]
  - THERAPEUTIC RESPONSE UNEXPECTED [None]
  - THERAPEUTIC RESPONSE DECREASED [None]
  - FEELING HOT [None]
